FAERS Safety Report 5194361-6 (Version None)
Quarter: 2006Q4

REPORT INFORMATION
  Report Type: 
  Country: None (occurrence: None)
  Receive Date: 20061228
  Receipt Date: 20061222
  Transmission Date: 20070319
  Serious: Yes (Hospitalization)
  Sender: FDA-Public Use
  Company Number: JP-ABBOTT-06P-087-0354109-00

PATIENT
  Age: 63 Year
  Sex: Male
  Weight: 65 kg

DRUGS (5)
  1. CLARITHROMYCIN [Suspect]
     Indication: HELICOBACTER INFECTION
     Route: 048
     Dates: start: 20050830, end: 20050903
  2. AMOXICILLIN HYDRATE [Suspect]
     Indication: HELICOBACTER INFECTION
     Route: 048
     Dates: start: 20050830, end: 20050903
  3. LANSOPRAZOLE [Concomitant]
     Indication: HELICOBACTER INFECTION
     Route: 048
     Dates: start: 20050830, end: 20050903
  4. ANTIBIOTICS [Concomitant]
     Indication: HELICOBACTER INFECTION
     Route: 048
     Dates: start: 20060830, end: 20060903
  5. ANTIBIOTICS [Concomitant]
     Indication: PATHOGEN RESISTANCE

REACTIONS (5)
  - CANDIDIASIS [None]
  - ENTEROCOLITIS HAEMORRHAGIC [None]
  - FUNGAL INFECTION [None]
  - HAEMATOCHEZIA [None]
  - KLEBSIELLA INFECTION [None]
